FAERS Safety Report 17240320 (Version 2)
Quarter: 2020Q3

REPORT INFORMATION
  Report Type: Report from Study
  Country: None (occurrence: US)
  Receive Date: 20200107
  Receipt Date: 20200930
  Transmission Date: 20201102
  Serious: Yes (Other)
  Sender: FDA-Public Use
  Company Number: US-ABBVIE-20K-163-3220922-00

PATIENT
  Sex: Male

DRUGS (1)
  1. HUMIRA [Suspect]
     Active Substance: ADALIMUMAB
     Indication: RHEUMATOID ARTHRITIS
     Dosage: CF
     Route: 058

REACTIONS (8)
  - Ileostomy [Unknown]
  - Renal failure [Unknown]
  - Muscle spasms [Unknown]
  - Lethargy [Unknown]
  - Decreased appetite [Unknown]
  - Glomerular filtration rate decreased [Unknown]
  - Dysphagia [Unknown]
  - Dyspnoea [Unknown]
